FAERS Safety Report 14422215 (Version 1)
Quarter: 2018Q1

REPORT INFORMATION
  Report Type: Spontaneous
  Country: US (occurrence: US)
  Receive Date: 20180123
  Receipt Date: 20180123
  Transmission Date: 20180509
  Serious: Yes (Other)
  Sender: FDA-Public Use
  Company Number: US-DRREDDYS-USA/USA/18/0095863

PATIENT
  Age: 14 Year
  Sex: Male

DRUGS (2)
  1. DOXORUBICIN HYDROCHLORIDE LIPOSOME INJECTION 20 MG/10 ML (2 MG/ML) AND [Suspect]
     Active Substance: DOXORUBICIN HYDROCHLORIDE
     Indication: ADENOID CYSTIC CARCINOMA
     Dosage: ON DAYS 1, 2, AND 3
     Route: 065
  2. CISPLATIN. [Suspect]
     Active Substance: CISPLATIN
     Indication: ADENOID CYSTIC CARCINOMA
     Dosage: VIA THE RIGHT EXTERNAL CAROTID ARTERY ON DAY 1
     Route: 013

REACTIONS (3)
  - Necrosis [Recovered/Resolved]
  - Inflammation [Recovered/Resolved]
  - Chronic kidney disease [Not Recovered/Not Resolved]
